FAERS Safety Report 5021334-6 (Version None)
Quarter: 2006Q2

REPORT INFORMATION
  Report Type: 
  Country: None (occurrence: None)
  Receive Date: 20060608
  Receipt Date: 20050812
  Transmission Date: 20061013
  Serious: No
  Sender: FDA-Public Use
  Company Number: US-BRISTOL-MYERS SQUIBB COMPANY-13076757

PATIENT
  Age: 69 Year
  Sex: Female
  Weight: 63 kg

DRUGS (12)
  1. SINEMET CR [Suspect]
     Indication: PARKINSON'S DISEASE
     Dates: start: 20050601
  2. LEVOTHROID [Concomitant]
  3. LASIX [Concomitant]
  4. DIGITEK [Concomitant]
  5. SPIRONOLACTONE [Concomitant]
  6. LISINOPRIL [Concomitant]
  7. COREG [Concomitant]
  8. POTASSIUM CHLORIDE [Concomitant]
  9. ALLOPURINOL [Concomitant]
  10. ISOSORBIDE [Concomitant]
  11. NITROQUICK [Concomitant]
  12. FLEXERIL [Concomitant]

REACTIONS (2)
  - FEELING HOT [None]
  - NERVOUSNESS [None]
